FAERS Safety Report 6960070-3 (Version None)
Quarter: 2010Q3

REPORT INFORMATION
  Report Type: 
  Country: None (occurrence: None)
  Receive Date: 20100901
  Receipt Date: 20100825
  Transmission Date: 20110219
  Serious: Yes (Disabling, Other)
  Sender: FDA-Public Use
  Company Number: BR-BAYER-BR-2007-018179

PATIENT
  Age: 37 Year
  Sex: Female

DRUGS (6)
  1. BETAFERON [Suspect]
     Indication: MULTIPLE SCLEROSIS
     Dosage: BETAJECT
     Route: 058
     Dates: start: 19970101
  2. BETAFERON [Suspect]
     Dosage: BETAJECT
     Route: 058
  3. LOSARTAN/ CHLOROTHIAZIDE [Concomitant]
     Indication: HYPERTENSION
     Dosage: LOSARTAN 25MG AND CHLOROTHIAZIDE12 MG
     Route: 048
     Dates: start: 20050101
  4. RETEMIC D [Concomitant]
     Indication: URINARY INCONTINENCE
     Route: 048
     Dates: start: 20060101
  5. DOXASOZINE [Concomitant]
     Indication: URINARY INCONTINENCE
     Dosage: TOTAL DAILY DOSE: 2 MG  UNIT DOSE: 2 MG
     Route: 048
     Dates: start: 20060101
  6. IBUPROFEN [Concomitant]
     Indication: PREMEDICATION
     Route: 048
     Dates: start: 19970101

REACTIONS (9)
  - GAIT DISTURBANCE [None]
  - HYPOKINESIA [None]
  - INJECTION SITE INFLAMMATION [None]
  - INJECTION SITE NODULE [None]
  - JOINT STIFFNESS [None]
  - MULTIPLE SCLEROSIS [None]
  - MUSCULOSKELETAL STIFFNESS [None]
  - OEDEMA PERIPHERAL [None]
  - PERIPHERAL VASCULAR DISORDER [None]
